FAERS Safety Report 7720134-3 (Version None)
Quarter: 2011Q3

REPORT INFORMATION
  Report Type: 
  Country: None (occurrence: None)
  Receive Date: 20110824
  Receipt Date: 20110811
  Transmission Date: 20111222
  Serious: Yes (Hospitalization)
  Sender: FDA-Public Use
  Company Number: 2011MA011964

PATIENT
  Age: 73 Year
  Sex: Female

DRUGS (3)
  1. DIOVAN [Suspect]
     Dosage: PO
     Route: 048
     Dates: start: 20110501
  2. METFORMIN HYDROCHLORIDE [Suspect]
     Dosage: PO
     Route: 048
     Dates: start: 20110501
  3. GENTAMICIN [Suspect]
     Dosage: IV
     Route: 042
     Dates: start: 20110501

REACTIONS (3)
  - DIALYSIS [None]
  - RENAL FAILURE [None]
  - DEHYDRATION [None]
